FAERS Safety Report 6522452-3 (Version None)
Quarter: 2009Q4

REPORT INFORMATION
  Report Type: 
  Country: None (occurrence: None)
  Receive Date: 20091224
  Receipt Date: 20091210
  Transmission Date: 20100525
  Serious: Yes (Life-Threatening)
  Sender: FDA-Public Use
  Company Number: C-09-0258

PATIENT
  Sex: Male
  Weight: 58.9676 kg

DRUGS (3)
  1. LINDANE [Suspect]
     Indication: ACARODERMATITIS
     Dosage: 2-3 TIMES/DAY, 060
  2. NOVALOG INSULIN [Concomitant]
  3. DILTIAZEM [Concomitant]

REACTIONS (8)
  - CONVULSION [None]
  - DIZZINESS [None]
  - EPISTAXIS [None]
  - HEADACHE [None]
  - HEPATITIS [None]
  - INCORRECT DRUG ADMINISTRATION DURATION [None]
  - NAUSEA [None]
  - VOMITING [None]
